FAERS Safety Report 7039903-0 (Version None)
Quarter: 2010Q4

REPORT INFORMATION
  Report Type: 
  Country: None (occurrence: None)
  Receive Date: 20101012
  Receipt Date: 20101005
  Transmission Date: 20110411
  Serious: Yes (Hospitalization, Other)
  Sender: FDA-Public Use
  Company Number: IN-PFIZER INC-2010127320

PATIENT
  Age: 57 Year
  Sex: Male

DRUGS (10)
  1. MAGNEX [Suspect]
     Dosage: 3 G, 1X/DAY
     Route: 042
     Dates: start: 20100830, end: 20100906
  2. AMLODIPINE [Concomitant]
     Dosage: UNK
  3. ATENOLOL [Concomitant]
     Dosage: UNK
  4. MINIPRESS XL [Concomitant]
     Dosage: UNK
  5. SHELCAL [Concomitant]
     Dosage: UNK
  6. ATORVASTATIN [Concomitant]
     Dosage: UNK
  7. IRON [Concomitant]
     Dosage: UNK
  8. FOLATE [Concomitant]
     Dosage: UNK
  9. PANTOPRAZOLE [Concomitant]
     Dosage: UNK
  10. MIXTARD HUMAN 70/30 [Concomitant]
     Dosage: 40 IU

REACTIONS (1)
  - STEVENS-JOHNSON SYNDROME [None]
